FAERS Safety Report 12249346 (Version 3)
Quarter: 2016Q4

REPORT INFORMATION
  Report Type: Spontaneous
  Country: KR (occurrence: KR)
  Receive Date: 20160408
  Receipt Date: 20161125
  Transmission Date: 20170207
  Serious: Yes (Hospitalization)
  Sender: FDA-Public Use
  Company Number: KR-TAKEDA-2016MPI002546

PATIENT
  Age: 67 Year
  Sex: Female
  Weight: 54 kg

DRUGS (23)
  1. DARATUMUMAB [Suspect]
     Active Substance: DARATUMUMAB
     Dosage: 896 MG, 1/WEEK
     Route: 042
     Dates: start: 20151113
  2. ZYLORIC [Concomitant]
     Active Substance: ALLOPURINOL
     Dosage: 300 MG, UNK
     Route: 048
     Dates: start: 20160206, end: 20160229
  3. VELCADE [Suspect]
     Active Substance: BORTEZOMIB
     Dosage: 1.5 MG, UNK
     Route: 058
     Dates: start: 20151113
  4. PREDNISONE. [Suspect]
     Active Substance: PREDNISONE
     Indication: PLASMA CELL MYELOMA
     Dosage: 90 MG, UNK
     Route: 048
     Dates: start: 20151021
  5. OMEGA-3-ACID ETHYL ESTER [Concomitant]
     Active Substance: OMEGA-3-ACID ETHYL ESTERS
     Indication: HYPERTENSION
     Dosage: 1000 MG, QD
     Route: 048
     Dates: start: 20141211
  6. BEPOTASTINE BESILATE [Concomitant]
     Active Substance: BEPOTASTINE BESILATE
     Indication: HYPERTENSION
     Dosage: 10 MG, QD
     Route: 048
     Dates: start: 2014
  7. VACROVIR                           /00587301/ [Concomitant]
     Dosage: 500 MG, BID
     Route: 048
     Dates: start: 20151204, end: 20151211
  8. DEXAMETHASONE. [Suspect]
     Active Substance: DEXAMETHASONE
     Indication: PLASMA CELL MYELOMA
     Dosage: 20 MG, 1/WEEK
     Route: 042
     Dates: start: 20151020
  9. CANDEMORE [Concomitant]
     Indication: HYPERTENSION
     Dosage: 8 MG, QD
     Route: 048
     Dates: start: 20111209
  10. FLUTICASONE W/SALMETEROL [Concomitant]
     Active Substance: FLUTICASONE PROPIONATE\SALMETEROL XINAFOATE
     Indication: ASTHMA
     Dosage: UNK, QD
     Route: 055
     Dates: start: 20110305
  11. FLUCONAZOLE. [Concomitant]
     Active Substance: FLUCONAZOLE
     Indication: INFECTION PROPHYLAXIS
     Dosage: 200 MG, UNK
     Route: 048
     Dates: start: 20151020
  12. VACROVIR                           /00587301/ [Concomitant]
     Indication: INFECTION PROPHYLAXIS
     Dosage: 500 MG, BID
     Route: 048
     Dates: start: 20151020
  13. PIPRINHYDRINATE [Concomitant]
     Indication: PREMEDICATION
     Dosage: 3 MG, UNK
     Route: 042
     Dates: start: 20151020
  14. ADCAL                              /00056901/ [Concomitant]
     Active Substance: CARBAZOCHROME
     Indication: PROPHYLAXIS
     Dosage: UNK, QD
     Route: 048
     Dates: start: 20151005, end: 20151012
  15. DARATUMUMAB [Suspect]
     Active Substance: DARATUMUMAB
     Indication: PLASMA CELL MYELOMA
     Dosage: 896 MG, 1/WEEK
     Route: 042
     Dates: start: 20151020, end: 20151027
  16. ROVETIN [Concomitant]
     Indication: HYPERTENSION
     Dosage: 0.25 MG, QD
     Route: 048
     Dates: start: 20141211
  17. MELPHALAN [Suspect]
     Active Substance: MELPHALAN
     Indication: PLASMA CELL MYELOMA
     Dosage: 14 MG, UNK
     Route: 048
     Dates: start: 20151020
  18. PANORIN [Concomitant]
     Indication: OSTEOPOROSIS PROPHYLAXIS
     Dosage: 90 MG, UNK
     Route: 042
     Dates: start: 20151020
  19. NORVASC [Concomitant]
     Active Substance: AMLODIPINE BESYLATE
     Indication: HYPERTENSION
     Dosage: 5 MG, QD
     Route: 048
     Dates: start: 200002
  20. VACROVIR                           /00587301/ [Concomitant]
     Dosage: 500 MG, UNK
     Route: 048
     Dates: start: 20160115
  21. ZYLORIC [Concomitant]
     Active Substance: ALLOPURINOL
     Indication: PAIN PROPHYLAXIS
     Dosage: 300 MG, UNK
     Route: 048
     Dates: start: 20151021
  22. VELCADE [Suspect]
     Active Substance: BORTEZOMIB
     Indication: PLASMA CELL MYELOMA
     Dosage: 2 MG, UNK
     Route: 058
     Dates: start: 20151020, end: 20151030
  23. CIPROCTAN [Concomitant]
     Indication: INFECTION PROPHYLAXIS
     Dosage: 1000 MG, UNK
     Route: 048
     Dates: start: 20151020

REACTIONS (6)
  - Cough [Unknown]
  - Respiratory arrest [Unknown]
  - Vomiting [Unknown]
  - Chills [Unknown]
  - Syncope [Recovered/Resolved]
  - Eye movement disorder [Unknown]

NARRATIVE: CASE EVENT DATE: 20151020
